FAERS Safety Report 25518443 (Version 2)
Quarter: 2025Q3

REPORT INFORMATION
  Report Type: Spontaneous
  Country: EU (occurrence: EU)
  Receive Date: 20250704
  Receipt Date: 20250710
  Transmission Date: 20251020
  Serious: Yes (Hospitalization)
  Sender: AUROBINDO
  Company Number: EU-VELOXIS PHARMACEUTICALS, INC.-2025-VEL-00302

PATIENT
  Age: 19 Year
  Sex: Male

DRUGS (8)
  1. TACROLIMUS [Suspect]
     Active Substance: TACROLIMUS
     Indication: Immunosuppression
     Dosage: 0.5 MILLIGRAM, ONCE A DAY(0.5 MILLIGRAM, QD)
     Route: 065
     Dates: start: 2013
  2. TACROLIMUS [Suspect]
     Active Substance: TACROLIMUS
     Indication: Graft versus host disease
  3. PREDNISOLONE [Suspect]
     Active Substance: PREDNISOLONE
     Indication: Immunosuppression
     Route: 065
     Dates: start: 2013
  4. PREDNISOLONE [Suspect]
     Active Substance: PREDNISOLONE
     Indication: Graft versus host disease
  5. SIROLIMUS [Suspect]
     Active Substance: SIROLIMUS
     Indication: Immunosuppression
     Dosage: 1 MILLIGRAM, ONCE A DAY(1 MILLIGRAM, QD)
     Route: 065
     Dates: start: 2013
  6. SIROLIMUS [Suspect]
     Active Substance: SIROLIMUS
     Indication: Graft versus host disease
  7. ACYCLOVIR [Concomitant]
     Active Substance: ACYCLOVIR
     Indication: Immunosuppression
     Dosage: 400 MILLIGRAM, ONCE A DAY(400 MILLIGRAM, QD)
     Route: 065
     Dates: start: 2013
  8. ACYCLOVIR [Concomitant]
     Active Substance: ACYCLOVIR
     Indication: Graft versus host disease

REACTIONS (1)
  - Varicella zoster virus infection [Unknown]
